FAERS Safety Report 5341936-7 (Version None)
Quarter: 2007Q2

REPORT INFORMATION
  Report Type: 
  Country: None (occurrence: None)
  Receive Date: 20070601
  Receipt Date: 20070525
  Transmission Date: 20071010
  Serious: Yes (Other)
  Sender: FDA-Public Use
  Company Number: JP-GENENTECH-234375

PATIENT
  Sex: Male
  Weight: 69 kg

DRUGS (11)
  1. RITUXIMAB [Suspect]
     Indication: NON-HODGKIN'S LYMPHOMA
     Dosage: 375 MG, QD
     Route: 042
     Dates: start: 20061006, end: 20061124
  2. FERROMIA [Concomitant]
     Indication: ANAEMIA
     Dates: start: 20061003
  3. LASIX [Concomitant]
     Indication: HEPATIC CIRRHOSIS
     Dosage: 1 DF, UNK
     Route: 048
     Dates: start: 20020101
  4. ALDACTONE [Concomitant]
     Indication: HEPATIC CIRRHOSIS
     Dosage: 1 DF, UNK
     Route: 048
     Dates: start: 20020101
  5. URSO 250 [Concomitant]
     Indication: HEPATIC CIRRHOSIS
     Dosage: 6 DF, UNK
     Route: 048
     Dates: start: 20020101
  6. OCTOTIAMINE [Concomitant]
     Indication: HEPATIC CIRRHOSIS
     Dosage: 3 DF, UNK
     Route: 048
     Dates: start: 20020101
  7. ASPARA [Concomitant]
     Indication: HEPATIC CIRRHOSIS
     Dosage: 3 DF, UNK
     Route: 048
     Dates: start: 20020101
  8. CHINESE MEDICINE [Concomitant]
     Indication: HEPATIC CIRRHOSIS
     Dosage: 7.5 MG, UNK
     Route: 048
     Dates: start: 20020101
  9. MOSAPRIDE CITRATE [Concomitant]
     Indication: PROPHYLAXIS
     Dosage: 3 DF, UNK
     Route: 048
     Dates: start: 20061003
  10. MEDICON [Concomitant]
     Indication: COUGH
     Dosage: 3 DF, UNK
     Route: 048
     Dates: start: 20020101
  11. RABEPRAZOLE SODIUM [Concomitant]
     Indication: GASTRIC ULCER

REACTIONS (2)
  - GASTROINTESTINAL HAEMORRHAGE [None]
  - TUMOUR LYSIS SYNDROME [None]
